FAERS Safety Report 18585071 (Version 1)
Quarter: 2020Q4

REPORT INFORMATION
  Report Type: Spontaneous
  Country: US (occurrence: US)
  Receive Date: 20201207
  Receipt Date: 20201207
  Transmission Date: 20210114
  Serious: Yes (Other)
  Sender: FDA-Public Use
  Company Number: US-ABBVIE-20K-163-3680815-00

PATIENT

DRUGS (1)
  1. IMBRUVICA [Suspect]
     Active Substance: IBRUTINIB
     Indication: CHRONIC LYMPHOCYTIC LEUKAEMIA
     Route: 048

REACTIONS (41)
  - Eye disorder [Recovered/Resolved]
  - Procedural haemorrhage [Recovered/Resolved]
  - Atrial fibrillation [Recovered/Resolved]
  - Rash [Recovered/Resolved]
  - Alopecia [Recovered/Resolved]
  - Cardiac failure congestive [Recovered/Resolved]
  - Gastritis [Recovered/Resolved]
  - Uveitis [Recovered/Resolved]
  - Glaucoma [Recovered/Resolved]
  - Haemoptysis [Recovered/Resolved]
  - Hepatobiliary disease [Recovered/Resolved]
  - Fatigue [Recovered/Resolved]
  - Cough [Recovered/Resolved]
  - Abdominal pain [Recovered/Resolved]
  - Mucosal inflammation [Recovered/Resolved]
  - Arthritis [Recovered/Resolved]
  - Hyponatraemia [Recovered/Resolved]
  - Dizziness [Recovered/Resolved]
  - Haematoma [Recovered/Resolved]
  - Arthralgia [Recovered/Resolved]
  - Gastrointestinal haemorrhage [Recovered/Resolved]
  - Hypertension [Recovered/Resolved]
  - Mouth haemorrhage [Recovered/Resolved]
  - Contusion [Recovered/Resolved]
  - Nausea [Recovered/Resolved]
  - Conjunctival haemorrhage [Recovered/Resolved]
  - Neutropenia [Recovered/Resolved]
  - Haemorrhage subcutaneous [Recovered/Resolved]
  - Vision blurred [Recovered/Resolved]
  - Ventricular extrasystoles [Recovered/Resolved]
  - Constipation [Recovered/Resolved]
  - Leukoencephalopathy [Recovered/Resolved]
  - Obliterative bronchiolitis [Recovered/Resolved]
  - Haemorrhage [Recovered/Resolved]
  - Diarrhoea [Recovered/Resolved]
  - Myalgia [Recovered/Resolved]
  - Panniculitis [Recovered/Resolved]
  - Transient ischaemic attack [Recovered/Resolved]
  - Squamous cell carcinoma of skin [Recovered/Resolved]
  - Ischaemic stroke [Recovered/Resolved]
  - Cytopenia [Recovered/Resolved]
